FAERS Safety Report 7152422-6 (Version None)
Quarter: 2010Q4

REPORT INFORMATION
  Report Type: 
  Country: None (occurrence: None)
  Receive Date: 20101124
  Receipt Date: 20101111
  Transmission Date: 20110411
  Serious: Yes (Death)
  Sender: FDA-Public Use
  Company Number: 008727

PATIENT
  Age: 3 Month
  Sex: Male

DRUGS (2)
  1. SAMSCA [Suspect]
     Indication: CAPILLARY LEAK SYNDROME
     Dosage: 2 MG, DAILY DOSE, ORAL
     Route: 048
  2. SAMSCA [Suspect]
     Indication: HYPONATRAEMIA
     Dosage: 2 MG, DAILY DOSE, ORAL
     Route: 048

REACTIONS (2)
  - INTESTINAL PERFORATION [None]
  - OFF LABEL USE [None]
